FAERS Safety Report 4282037-9 (Version None)
Quarter: 2004Q1

REPORT INFORMATION
  Report Type: 
  Country: None (occurrence: None)
  Receive Date: 20040128
  Receipt Date: 20040116
  Transmission Date: 20041129
  Serious: Yes (Other)
  Sender: FDA-Public Use
  Company Number: 138069USA

PATIENT
  Age: 31 Year
  Sex: Female

DRUGS (1)
  1. PIMOZIDE [Suspect]
     Indication: ANXIETY
     Dosage: 1 MILLIGRAM, ORAL
     Route: 048
     Dates: start: 19990101, end: 20030101

REACTIONS (3)
  - ABORTION SPONTANEOUS [None]
  - COMPLICATIONS OF MATERNAL EXPOSURE TO THERAPEUTIC DRUGS [None]
  - MATERNAL DRUGS AFFECTING FOETUS [None]
